FAERS Safety Report 7775874 (Version 5)
Quarter: 2025Q1

REPORT INFORMATION
  Report Type: Spontaneous
  Country: US (occurrence: US)
  Receive Date: 20110127
  Receipt Date: 20250226
  Transmission Date: 20250408
  Serious: Yes (Hospitalization, Other)
  Sender: AMGEN
  Company Number: US-AMGEN-USASP2010004982

PATIENT
  Age: 0 Year
  Sex: Male
  Weight: 3.678 kg

DRUGS (6)
  1. ENBREL [Suspect]
     Active Substance: ETANERCEPT
     Indication: Product used for unknown indication
     Route: 064
  2. ENBREL [Suspect]
     Active Substance: ETANERCEPT
     Route: 063
  3. METHYLDOPA [Concomitant]
     Active Substance: METHYLDOPA
     Dosage: 250 MILLIGRAM, TID
     Route: 064
     Dates: start: 201004, end: 201102
  4. VITAMINS [Concomitant]
     Active Substance: VITAMINS
  5. FISH OIL [Concomitant]
     Active Substance: FISH OIL
     Dosage: 1000 MILLIGRAM, Q4WK
     Route: 064
  6. FLAXSEED [Concomitant]
     Active Substance: FLAX SEED
     Dosage: 3000 MILLIGRAM, Q4WK
     Route: 064

REACTIONS (7)
  - Jaundice [Recovered/Resolved]
  - Bacteraemia [Recovered/Resolved]
  - Urinary tract infection [Recovered/Resolved]
  - Resuscitation [Recovered/Resolved]
  - Dehydration [Recovered/Resolved]
  - Weight decrease neonatal [Recovered/Resolved]
  - Exposure via breast milk [Unknown]

NARRATIVE: CASE EVENT DATE: 20101203
